FAERS Safety Report 5480367-6 (Version None)
Quarter: 2007Q4

REPORT INFORMATION
  Report Type: 
  Country: None (occurrence: None)
  Receive Date: 20071009
  Receipt Date: 20070927
  Transmission Date: 20080405
  Serious: Yes (Other)
  Sender: FDA-Public Use
  Company Number: IN-ROCHE-522004

PATIENT
  Age: 19 Year
  Sex: Male

DRUGS (1)
  1. INTERFERON ALFA-2A [Suspect]
     Route: 058

REACTIONS (1)
  - MANIA [None]
